FAERS Safety Report 6553666-4 (Version None)
Quarter: 2010Q1

REPORT INFORMATION
  Report Type: 
  Country: None (occurrence: None)
  Receive Date: 20100127
  Receipt Date: 20100118
  Transmission Date: 20100710
  Serious: Yes (Other)
  Sender: FDA-Public Use
  Company Number: PHHY2009BR50743

PATIENT
  Age: 74 Year
  Sex: Female
  Weight: 62 kg

DRUGS (4)
  1. DIOVAN [Suspect]
     Dosage: 1 DF (80 MG), DAILY
     Route: 065
     Dates: start: 20020101
  2. NEXIUM [Concomitant]
     Route: 065
  3. OMEPRAZOLE [Concomitant]
     Dosage: 1 TABLET DAILY
     Route: 065
  4. COPOTOZOL [Concomitant]

REACTIONS (3)
  - BLOOD PRESSURE ABNORMAL [None]
  - PHLEBECTOMY [None]
  - VASCULAR GRAFT [None]
